FAERS Safety Report 10112237 (Version 1)
Quarter: 2014Q2

REPORT INFORMATION
  Report Type: Spontaneous
  Country: US (occurrence: US)
  Receive Date: 20140425
  Receipt Date: 20140425
  Transmission Date: 20141212
  Serious: No
  Sender: FDA-Public Use
  Company Number: US-009507513-1403USA011535

PATIENT
  Sex: Female

DRUGS (2)
  1. MIRALAX [Suspect]
     Indication: CONSTIPATION
     Dosage: 17 G, 5 TIMES PER DAY
     Route: 048
     Dates: start: 20140316
  2. MIRALAX [Suspect]
     Indication: IRRITABLE BOWEL SYNDROME
     Dosage: 34 G, 2 OR 3 TIMES
     Route: 048
     Dates: start: 20140316

REACTIONS (2)
  - Overdose [Unknown]
  - Off label use [Unknown]
